FAERS Safety Report 6617101-X (Version None)
Quarter: 2010Q1

REPORT INFORMATION
  Report Type: 
  Country: None (occurrence: None)
  Receive Date: 20100307
  Receipt Date: 20100223
  Transmission Date: 20100710
  Serious: Yes (Death)
  Sender: FDA-Public Use
  Company Number: JP-BRISTOL-MYERS SQUIBB COMPANY-15005911

PATIENT
  Age: 44 Year
  Sex: Male

DRUGS (5)
  1. BLEOMYCIN SULFATE [Suspect]
     Indication: TESTICULAR CHORIOCARCINOMA STAGE III
  2. ETOPOSIDE [Suspect]
     Indication: TESTICULAR CHORIOCARCINOMA STAGE III
  3. CISPLATIN [Suspect]
     Indication: TESTICULAR CHORIOCARCINOMA STAGE III
  4. IFOSFAMIDE [Suspect]
     Indication: TESTICULAR CHORIOCARCINOMA STAGE III
  5. RADIATION THERAPY [Suspect]
     Indication: TESTICULAR CHORIOCARCINOMA STAGE III

REACTIONS (1)
  - BRAIN OEDEMA [None]
